FAERS Safety Report 18683299 (Version 1)
Quarter: 2020Q4

REPORT INFORMATION
  Report Type: Spontaneous
  Country: US (occurrence: US)
  Receive Date: 20201229
  Receipt Date: 20201229
  Transmission Date: 20210114
  Serious: Yes (Hospitalization)
  Sender: FDA-Public Use
  Company Number: None

PATIENT
  Age: 64 Year
  Sex: Male
  Weight: 109 kg

DRUGS (2)
  1. RITUXIMAB (MOAB C2B8 ANTI CD20, CHIMERIC) [Suspect]
     Active Substance: RITUXIMAB
     Dates: end: 20201216
  2. CYTARABINE. [Suspect]
     Active Substance: CYTARABINE
     Dates: end: 20201217

REACTIONS (1)
  - Pneumothorax [None]

NARRATIVE: CASE EVENT DATE: 20201228
